FAERS Safety Report 16082320 (Version 2)
Quarter: 2019Q1

REPORT INFORMATION
  Report Type: Spontaneous
  Country: IT (occurrence: ES)
  Receive Date: 20190318
  Receipt Date: 20190318
  Transmission Date: 20190418
  Serious: Yes (Other)
  Sender: FDA-Public Use
  Company Number: IT-BEH-2019100390

PATIENT
  Age: 49 Year

DRUGS (2)
  1. FACTOR VIII INHIBITOR BYPASSING FRACTION [Concomitant]
     Active Substance: ANTI-INHIBITOR COAGULANT COMPLEX
     Dosage: 50 IU, EVERY 12H
     Route: 065
  2. FACTOR VIII RECOMBINANT (INN) [Suspect]
     Active Substance: ANTIHEMOPHILIC FACTOR, HUMAN RECOMBINANT
     Indication: FACTOR VIII DEFICIENCY
     Dosage: 150 ?G/KG, PRN X3-4 DOSES
     Route: 065

REACTIONS (1)
  - Factor VIII inhibition [Recovered/Resolved]
